FAERS Safety Report 15037182 (Version 1)
Quarter: 2018Q2

REPORT INFORMATION
  Report Type: Other
  Country: CA (occurrence: CA)
  Receive Date: 20180620
  Receipt Date: 20180620
  Transmission Date: 20180711
  Serious: Yes (Hospitalization, Other)
  Sender: FDA-Public Use
  Company Number: CA-APOTEX-2018AP015683

PATIENT
  Sex: Female

DRUGS (1)
  1. APO-LEVETIRACETAM [Suspect]
     Active Substance: LEVETIRACETAM
     Indication: SEIZURE
     Dosage: 500 MG, BID
     Route: 048

REACTIONS (2)
  - Drug ineffective [Recovered/Resolved]
  - Seizure [Recovered/Resolved]
